FAERS Safety Report 12968637 (Version 2)
Quarter: 2016Q4

REPORT INFORMATION
  Report Type: Spontaneous
  Country: JP (occurrence: JP)
  Receive Date: 20161123
  Receipt Date: 20161208
  Transmission Date: 20170207
  Serious: Yes (Other)
  Sender: FDA-Public Use
  Company Number: JP-UCBSA-2016044248

PATIENT
  Age: 3 Decade
  Sex: Male

DRUGS (1)
  1. XYZAL [Suspect]
     Active Substance: LEVOCETIRIZINE DIHYDROCHLORIDE
     Indication: RHINITIS ALLERGIC
     Dosage: 5 MG, ONCE DAILY (QD)
     Route: 048
     Dates: start: 201611, end: 201611

REACTIONS (3)
  - Aggression [Unknown]
  - Irritability [Unknown]
  - Homicidal ideation [Unknown]

NARRATIVE: CASE EVENT DATE: 201611
